FAERS Safety Report 7357049-9 (Version None)
Quarter: 2011Q1

REPORT INFORMATION
  Report Type: 
  Country: None (occurrence: None)
  Receive Date: 20110311
  Receipt Date: 20110311
  Transmission Date: 20110831
  Serious: No
  Sender: FDA-Public Use
  Company Number: None

PATIENT
  Sex: Female
  Weight: 53.9 kg

DRUGS (3)
  1. TAXOL [Suspect]
     Dosage: 632 MG
     Dates: end: 20101005
  2. CARBOPLATIN [Suspect]
     Dosage: 1569 MG
     Dates: end: 20101005
  3. ERBITUX [Suspect]
     Dosage: 2607 MG
     Dates: end: 20101019

REACTIONS (1)
  - LYMPHOPENIA [None]
